FAERS Safety Report 22834003 (Version 3)
Quarter: 2024Q3

REPORT INFORMATION
  Report Type: Spontaneous
  Country: CN (occurrence: CN)
  Receive Date: 20230817
  Receipt Date: 20240919
  Transmission Date: 20241016
  Serious: Yes (Death, Congenital Anomaly, Other)
  Sender: NOVARTIS
  Company Number: CN-002147023-NVSC2023CN176772

PATIENT
  Sex: Male
  Weight: 2.62 kg

DRUGS (1)
  1. CYCLOSPORINE [Suspect]
     Active Substance: CYCLOSPORINE
     Indication: Foetal exposure during pregnancy
     Dosage: MATERNAL DOSE: 25 MG TWICE A DAY
     Route: 064

REACTIONS (8)
  - Neonatal lupus erythematosus [Fatal]
  - Haemophagocytic lymphohistiocytosis [Fatal]
  - Pyrexia [Fatal]
  - Rash erythematous [Fatal]
  - Diarrhoea [Fatal]
  - Pancytopenia [Fatal]
  - Hepatosplenomegaly [Fatal]
  - Foetal exposure during pregnancy [Unknown]
